FAERS Safety Report 19417057 (Version 1)
Quarter: 2021Q2

REPORT INFORMATION
  Report Type: Spontaneous
  Country: US (occurrence: US)
  Receive Date: 20210614
  Receipt Date: 20210614
  Transmission Date: 20210717
  Serious: Yes (Hospitalization)
  Sender: FDA-Public Use
  Company Number: None

PATIENT
  Age: 47 Year
  Sex: Female

DRUGS (3)
  1. STELARA [Suspect]
     Active Substance: USTEKINUMAB
     Indication: CROHN^S DISEASE
     Dosage: FREQUENCY: EVERY 8 WEEKS
     Route: 058
     Dates: start: 20171220
  2. MYRBETRIQ [Concomitant]
     Active Substance: MIRABEGRON
  3. ATORVASTATJN [Concomitant]

REACTIONS (1)
  - Hernia repair [None]

NARRATIVE: CASE EVENT DATE: 20210607
